FAERS Safety Report 18626251 (Version 9)
Quarter: 2025Q3

REPORT INFORMATION
  Report Type: Report from Study
  Country: EU (occurrence: EU)
  Receive Date: 20201217
  Receipt Date: 20250803
  Transmission Date: 20251020
  Serious: Yes (Other)
  Sender: ALEXION PHARMACEUTICALS
  Company Number: 2020SF64541

PATIENT
  Age: 68 Year
  Sex: Female
  Weight: 88.8 kg

DRUGS (25)
  1. FASLODEX [Suspect]
     Active Substance: FULVESTRANT
     Indication: Hormone receptor positive HER2 negative breast cancer
     Dosage: 500 MILLIGRAM, Q2W
     Dates: start: 20190807, end: 20190903
  2. FASLODEX [Suspect]
     Active Substance: FULVESTRANT
     Dosage: 500 MILLIGRAM, UNK, FREQUENCY: Q4WK
     Dates: start: 20190904, end: 20240905
  3. FASLODEX [Suspect]
     Active Substance: FULVESTRANT
     Dosage: 500 MILLIGRAM, UNK, FREQUENCY: Q4WK
     Dates: end: 20190903
  4. KISQALI [Suspect]
     Active Substance: RIBOCICLIB SUCCINATE
     Indication: Breast cancer metastatic
     Dosage: 600 MG, QD (SCHEMA 21 DAYS INTAKE, 7 DAYS PAUSE)
     Dates: start: 20190129, end: 20190521
  5. KISQALI [Suspect]
     Active Substance: RIBOCICLIB SUCCINATE
     Indication: Hormone receptor positive HER2 negative breast cancer
     Dosage: 600 MG, QD (SCHEME 21 DAYS, 7 DAYS PAUSE)
     Dates: start: 20190529, end: 20190806
  6. KISQALI [Suspect]
     Active Substance: RIBOCICLIB SUCCINATE
     Indication: Hormone receptor positive HER2 negative breast cancer
     Dosage: 600 MG, QD (SCHEME 21 DAYS, 7 DAYS PAUSE)
     Dates: start: 20190807, end: 20191024
  7. KISQALI [Suspect]
     Active Substance: RIBOCICLIB SUCCINATE
     Dosage: 600 MG, QD (SCHEME 21 DAYS, 7 DAYS PAUSE)
     Dates: start: 20191120, end: 20200423
  8. KISQALI [Suspect]
     Active Substance: RIBOCICLIB SUCCINATE
     Dosage: 400 MG, QD (SCHEME 21 DAYS, 7 DAYS PAUSE)
     Dates: start: 20200424, end: 20200504
  9. KISQALI [Suspect]
     Active Substance: RIBOCICLIB SUCCINATE
     Dosage: 400 MG, QD (SCHEME 21 DAYS, 7 DAYS PAUSE)
     Dates: start: 20200511, end: 20200803
  10. KISQALI [Suspect]
     Active Substance: RIBOCICLIB SUCCINATE
     Dosage: 200 MG, QD (SCHEME 21 DAYS, 7 DAYS PAUSE) (STOP DATE: 07 DEC 2021)
     Dates: start: 20200804, end: 20211207
  11. KISQALI [Suspect]
     Active Substance: RIBOCICLIB SUCCINATE
     Dosage: 200 MG, QD (SCHEMA 21 DAYS INTAKE, 7 DAYS PAUSE)(STOP DATE: 07 DEC 2021)
     Route: 065
     Dates: start: 20211208, end: 20220105
  12. KISQALI [Suspect]
     Active Substance: RIBOCICLIB SUCCINATE
     Dosage: 200 MG, QD (SCHEMA 21 DAYS INTAKE, 7 DAYS PAUSE) (STOP DATE: 07 DEC 2021)
     Dates: start: 20220106, end: 20240905
  13. KISQALI [Suspect]
     Active Substance: RIBOCICLIB SUCCINATE
     Dosage: 600 MG, QD (SCHEME 21 DAYS, 7 DAYS PAUSE) 29-JAN-2019 00:00
     Dates: end: 20190521
  14. KISQALI [Suspect]
     Active Substance: RIBOCICLIB SUCCINATE
     Dosage: 600 MG, QD (SCHEME 21 DAYS, 7 DAYS PAUSE), 29-MAY-2019
     Dates: end: 20190806
  15. KISQALI [Suspect]
     Active Substance: RIBOCICLIB SUCCINATE
     Dosage: 600 MG, QD (SCHEME 21 DAYS, 7 DAYS PAUSE), 07-AUG-2019
     Dates: end: 20191024
  16. KISQALI [Suspect]
     Active Substance: RIBOCICLIB SUCCINATE
     Dosage: 600 MG, QD (SCHEME 21 DAYS, 7 DAYS PAUSE), 20-NOV-2019
     Dates: end: 20200423
  17. KISQALI [Suspect]
     Active Substance: RIBOCICLIB SUCCINATE
     Dosage: 400 MG, QD (SCHEME 21 DAYS, 7 DAYS PAUSE), 24-APR-2020
     Dates: end: 20200504
  18. KISQALI [Suspect]
     Active Substance: RIBOCICLIB SUCCINATE
     Dosage: 400 MG, QD (SCHEME 21 DAYS, 7 DAYS PAUSE), 11-MAY-2020
     Dates: end: 20200803
  19. KISQALI [Suspect]
     Active Substance: RIBOCICLIB SUCCINATE
     Dosage: 200 MG, QD (SCHEME 21 DAYS, 7 DAYS PAUSE) (STOP DATE: 07 DEC 2021), 04-AUG-2020
     Dates: end: 20211207
  20. KISQALI [Suspect]
     Active Substance: RIBOCICLIB SUCCINATE
     Dosage: 200 MG, QD (SCHEMA 21 DAYS INTAKE, 7 DAYS PAUSE)(STOP DATE: 07 DEC 2021), 08-DEC-2021
     Route: 065
     Dates: end: 20220105
  21. KISQALI [Suspect]
     Active Substance: RIBOCICLIB SUCCINATE
     Dosage: 200 MG, QD (SCHEMA 21 DAYS INTAKE, 7 DAYS PAUSE) (STOP DATE: 07 DEC 2021), 06-JAN-2022
     Dates: end: 20240905
  22. KISQALI [Suspect]
     Active Substance: RIBOCICLIB SUCCINATE
     Dosage: 600 MG, QD (SCHEMA 21 DAYS INTAKE, 7  DAYS PAUSE), 29-JAN-2019
     Dates: end: 20190521
  23. LETROZOLE [Suspect]
     Active Substance: LETROZOLE
     Indication: Hormone receptor positive HER2 negative breast cancer
     Dosage: 2.5 MG, QD (LAST DOSE RECEIVED ON 06 AUG 2019)
     Dates: start: 20190129, end: 20190806
  24. LETROZOLE [Suspect]
     Active Substance: LETROZOLE
     Indication: Hormone receptor positive HER2 negative breast cancer
     Dosage: 2.5 MG, QD (LAST DOSE RECEIVED ON 06 AUG 2019) 29-JAN-2019
     Dates: end: 20190806
  25. LETROZOLE [Suspect]
     Active Substance: LETROZOLE
     Indication: Hormone receptor positive HER2 negative breast cancer

REACTIONS (24)
  - Arrhythmia [Unknown]
  - Chest pain [Unknown]
  - Supraventricular extrasystoles [Unknown]
  - Dyspnoea exertional [Recovered/Resolved]
  - Neutropenia [Recovered/Resolved]
  - Leukopenia [Recovered/Resolved]
  - Heart rate increased [Recovered/Resolved]
  - Thrombocytopenia [Recovered/Resolved]
  - Electrocardiogram QT prolonged [Unknown]
  - Blood pressure systolic increased [Recovered/Resolved]
  - Blood pressure diastolic decreased [Recovered/Resolved]
  - Pulmonary embolism [Unknown]
  - Pulmonary valve incompetence [Unknown]
  - Tricuspid valve incompetence [Unknown]
  - Myocardial infarction [Unknown]
  - Dry mouth [Not Recovered/Not Resolved]
  - Sensory disturbance [Not Recovered/Not Resolved]
  - Blood potassium increased [Unknown]
  - QRS axis abnormal [Unknown]
  - Oedema peripheral [Unknown]
  - Dizziness [Recovered/Resolved]
  - Supraventricular tachycardia [Unknown]
  - Sinus bradycardia [Unknown]
  - Paraesthesia [Recovered/Resolved]

NARRATIVE: CASE EVENT DATE: 20190130
